FAERS Safety Report 7170951-6 (Version None)
Quarter: 2010Q4

REPORT INFORMATION
  Report Type: 
  Country: None (occurrence: None)
  Receive Date: 20101123
  Receipt Date: 20100929
  Transmission Date: 20110411
  Serious: No
  Sender: FDA-Public Use
  Company Number: 017400

PATIENT
  Sex: Female
  Weight: 52.6 kg

DRUGS (5)
  1. CIMZIA [Suspect]
     Indication: CROHN'S DISEASE
     Dosage: (400 MG 1X/MONTH SUBCUTANEOUS)
     Route: 058
     Dates: start: 20100710
  2. IMURAN [Concomitant]
  3. DONNATAL [Concomitant]
  4. LOMOTIL /00034001/ [Concomitant]
  5. VICODIN [Concomitant]

REACTIONS (5)
  - ABDOMINAL PAIN [None]
  - APHAGIA [None]
  - EYE PAIN [None]
  - GASTROINTESTINAL OBSTRUCTION [None]
  - VOMITING [None]
